FAERS Safety Report 22083550 (Version 1)
Quarter: 2023Q1

REPORT INFORMATION
  Report Type: Spontaneous
  Country: US (occurrence: None)
  Receive Date: 20230309
  Receipt Date: 20230309
  Transmission Date: 20230417
  Serious: Yes (Hospitalization)
  Sender: FDA-Public Use
  Company Number: None

PATIENT
  Age: 66 Year
  Sex: Male
  Weight: 107.1 kg

DRUGS (2)
  1. CEFEPIME [Suspect]
     Active Substance: CEFEPIME HYDROCHLORIDE
     Indication: Abscess drainage
     Dosage: FREQUENCY : 3 TIMES A DAY;?
     Route: 042
     Dates: start: 20230214, end: 20230303
  2. DAPTOMYCIN [Concomitant]
     Active Substance: DAPTOMYCIN
     Dates: start: 20230214

REACTIONS (8)
  - Rash pruritic [None]
  - Hypersensitivity [None]
  - Acute kidney injury [None]
  - Tubulointerstitial nephritis [None]
  - Infusion related reaction [None]
  - Eosinophils urine [None]
  - Urticaria [None]
  - Cross sensitivity reaction [None]

NARRATIVE: CASE EVENT DATE: 20230303
